FAERS Safety Report 13274582 (Version 1)
Quarter: 2017Q1

REPORT INFORMATION
  Report Type: Spontaneous
  Country: FR (occurrence: FR)
  Receive Date: 20170227
  Receipt Date: 20170227
  Transmission Date: 20170428
  Serious: Yes (Hospitalization)
  Sender: FDA-Public Use
  Company Number: FR-ROCHE-1893842

PATIENT
  Age: 68 Year
  Sex: Female

DRUGS (4)
  1. ZELBORAF [Suspect]
     Active Substance: VEMURAFENIB
     Indication: MALIGNANT MELANOMA
     Route: 048
     Dates: start: 20170113, end: 20170123
  2. TRAMETINIB [Concomitant]
     Active Substance: TRAMETINIB
     Route: 065
     Dates: start: 20170206
  3. COTELLIC [Suspect]
     Active Substance: COBIMETINIB
     Indication: MALIGNANT MELANOMA
     Route: 048
     Dates: start: 20170113, end: 20170123
  4. DABRAFENIB [Concomitant]
     Active Substance: DABRAFENIB
     Route: 065
     Dates: start: 20170206

REACTIONS (5)
  - Rash morbilliform [Recovered/Resolved]
  - Asthenia [Unknown]
  - Rash maculo-papular [Recovered/Resolved]
  - Conjunctivitis [Unknown]
  - Pyrexia [Recovered/Resolved]

NARRATIVE: CASE EVENT DATE: 20170123
